FAERS Safety Report 4845126-3 (Version None)
Quarter: 2005Q4

REPORT INFORMATION
  Report Type: 
  Country: None (occurrence: None)
  Receive Date: 20051115
  Receipt Date: 20050920
  Transmission Date: 20060501
  Serious: Yes (Other)
  Sender: FDA-Public Use
  Company Number: 418641

PATIENT
  Age: 41 Year
  Sex: Female
  Weight: 84.8 kg

DRUGS (5)
  1. PEGASYS [Suspect]
     Indication: HEPATITIS C
     Dosage: SUBCUTANEOUS
     Route: 058
     Dates: start: 20050716, end: 20050919
  2. COPEGUS [Suspect]
     Indication: HEPATITIS C
     Dosage: ORAL
     Route: 048
     Dates: start: 20050716, end: 20050920
  3. PREDNISONE TAB [Concomitant]
  4. URSODIOL [Concomitant]
  5. RANITIDINE [Concomitant]

REACTIONS (4)
  - DEPRESSION [None]
  - EPISTAXIS [None]
  - HEADACHE [None]
  - PLATELET COUNT DECREASED [None]
